FAERS Safety Report 5431390-9 (Version None)
Quarter: 2007Q3

REPORT INFORMATION
  Report Type: 
  Country: None (occurrence: None)
  Receive Date: 20070830
  Receipt Date: 20070517
  Transmission Date: 20080115
  Serious: No
  Sender: FDA-Public Use
  Company Number: A0652048A

PATIENT
  Sex: Female

DRUGS (1)
  1. WELLBUTRIN XL [Suspect]
     Indication: DRUG USE FOR UNKNOWN INDICATION
     Dates: start: 20070502

REACTIONS (4)
  - EYE PAIN [None]
  - MYDRIASIS [None]
  - PHOTOPHOBIA [None]
  - VISUAL DISTURBANCE [None]
